FAERS Safety Report 15072604 (Version 1)
Quarter: 2018Q2

REPORT INFORMATION
  Report Type: Spontaneous
  Country: GB (occurrence: GB)
  Receive Date: 20180627
  Receipt Date: 20180627
  Transmission Date: 20180711
  Serious: Yes (Death)
  Sender: FDA-Public Use
  Company Number: GB-ABBVIE-18K-167-2400503-00

PATIENT
  Age: 80 Year
  Sex: Male

DRUGS (1)
  1. DUODOPA [Suspect]
     Active Substance: CARBIDOPA\LEVODOPA
     Indication: PRODUCT USED FOR UNKNOWN INDICATION
     Route: 050
     Dates: start: 2014

REACTIONS (6)
  - Helminthic infection [Unknown]
  - Cognitive disorder [Unknown]
  - Freezing phenomenon [Unknown]
  - Dyskinesia [Unknown]
  - Death [Fatal]
  - On and off phenomenon [Unknown]

NARRATIVE: CASE EVENT DATE: 2014
